FAERS Safety Report 15425880 (Version 1)
Quarter: 2018Q4

REPORT INFORMATION
  Report Type: Spontaneous
  Country: ZA (occurrence: ZA)
  Receive Date: 20180925
  Receipt Date: 20180925
  Transmission Date: 20190204
  Serious: Yes (Hospitalization)
  Sender: FDA-Public Use
  Company Number: ZA-PFIZER INC-2018339545

PATIENT
  Age: 58 Year
  Sex: Male

DRUGS (8)
  1. CARLOC [Suspect]
     Active Substance: CARVEDILOL
     Dosage: 12.5 MG, UNK
  2. LYRICA [Suspect]
     Active Substance: PREGABALIN
     Indication: PAIN
     Dosage: 150 MG, 1X/DAY
  3. ECOTRIN [Suspect]
     Active Substance: ASPIRIN
     Dosage: 81 MG, UNK
  4. EXINEF [Suspect]
     Active Substance: ETORICOXIB
     Dosage: 90 MG, UNK
  5. ADCO-SIMVASTATIN [Suspect]
     Active Substance: SIMVASTATIN
     Dosage: 20 MG, UNK
  6. URBANOL [Suspect]
     Active Substance: CLOBAZAM
     Dosage: 5 MG, UNK
  7. STILNOX MR [Suspect]
     Active Substance: ZOLPIDEM TARTRATE
     Dosage: 12.5 MG, UNK
  8. SYNALEVE [CODEINE PHOSPHATE;MEPROBAMATE;PARACETAMOL] [Suspect]
     Active Substance: ACETAMINOPHEN\CODEINE PHOSPHATE\MEPROBAMATE
     Dosage: UNK

REACTIONS (1)
  - Muscle disorder [Unknown]
